FAERS Safety Report 19937933 (Version 1)
Quarter: 2021Q4

REPORT INFORMATION
  Report Type: Spontaneous
  Country: US (occurrence: US)
  Receive Date: 20211011
  Receipt Date: 20211011
  Transmission Date: 20220303
  Serious: No
  Sender: FDA-Public Use
  Company Number: US-ROCHE-2861498

PATIENT
  Age: 52 Year
  Sex: Female

DRUGS (3)
  1. EVRYSDI [Suspect]
     Active Substance: RISDIPLAM
     Indication: Spinal muscular atrophy
     Dosage: EVRYSDI 0.75MG/1ML 80POSO US
     Route: 065
     Dates: start: 20210308
  2. EVRYSDI [Suspect]
     Active Substance: RISDIPLAM
     Route: 065
     Dates: start: 20201106
  3. COVID-19 VACCINE [Concomitant]

REACTIONS (3)
  - Incorrect dose administered [Unknown]
  - Device leakage [Unknown]
  - No adverse event [Unknown]

NARRATIVE: CASE EVENT DATE: 20210301
